FAERS Safety Report 25963308 (Version 1)
Quarter: 2025Q4

REPORT INFORMATION
  Report Type: Spontaneous
  Country: TR (occurrence: TR)
  Receive Date: 20251027
  Receipt Date: 20251027
  Transmission Date: 20260117
  Serious: Yes (Other)
  Sender: CSL BEHRING
  Company Number: TR-BEH-2025222835

PATIENT
  Age: 5 Year
  Sex: Male

DRUGS (2)
  1. HUMAN IMMUNOGLOBULIN G [Suspect]
     Active Substance: HUMAN IMMUNOGLOBULIN G
     Indication: Kawasaki^s disease
     Dosage: 2000 MG/KG, QD
     Route: 042
  2. ASPIRIN [Suspect]
     Active Substance: ASPIRIN
     Dosage: 80?100 MG/KG, QD
     Route: 048

REACTIONS (1)
  - Anaemia [Recovered/Resolved]
